FAERS Safety Report 10754626 (Version 3)
Quarter: 2015Q2

REPORT INFORMATION
  Report Type: Spontaneous
  Country: CA (occurrence: CA)
  Receive Date: 20150202
  Receipt Date: 20150629
  Transmission Date: 20150821
  Serious: Yes (Hospitalization)
  Sender: FDA-Public Use
  Company Number: CA-ASTELLAS-2015US002555

PATIENT
  Age: 6 Month
  Sex: Male

DRUGS (4)
  1. PROGRAF [Suspect]
     Active Substance: TACROLIMUS\TACROLIMUS ANHYDROUS
     Indication: AUTOIMMUNE DISORDER
     Dosage: 0.3 MG, TWICE DAILY
     Route: 065
     Dates: start: 201402
  2. PROGRAF [Suspect]
     Active Substance: TACROLIMUS\TACROLIMUS ANHYDROUS
     Indication: BONE MARROW TRANSPLANT
     Dosage: 0.3 ML, TWICE DAILY
     Route: 048
     Dates: start: 20150130
  3. CYCLOSPORIN [Suspect]
     Active Substance: CYCLOSPORINE
     Indication: PRODUCT USED FOR UNKNOWN INDICATION
     Dosage: UNK, UNKNOWN FREQ.
     Route: 065
  4. PROGRAF [Suspect]
     Active Substance: TACROLIMUS\TACROLIMUS ANHYDROUS
     Indication: GASTROINTESTINAL DISORDER
     Dosage: 0.9 MG, TWICE DAILY
     Route: 048
     Dates: start: 201407

REACTIONS (4)
  - Transplant failure [Unknown]
  - Drug level fluctuating [Unknown]
  - Off label use [Unknown]
  - Off label use [Unknown]

NARRATIVE: CASE EVENT DATE: 201407
